FAERS Safety Report 8986557 (Version 1)
Quarter: 2012Q4

REPORT INFORMATION
  Report Type: 
  Country: US (occurrence: US)
  Receive Date: 20121226
  Receipt Date: 20121226
  Transmission Date: 20130627
  Serious: Yes (Other)
  Sender: FDA-Public Use
  Company Number: US-009507513-2009SP038965

PATIENT

DRUGS (4)
  1. NUVARING [Suspect]
     Indication: CONTRACEPTION
     Dates: start: 200504, end: 2007
  2. NUVARING [Suspect]
     Indication: MENSTRUAL CYCLE MANAGEMENT
     Dates: start: 20080320, end: 20090726
  3. LORTAB [Suspect]
     Indication: HEADACHE
  4. PROVENTIL [Concomitant]
     Dates: start: 2002

REACTIONS (33)
  - Suicidal ideation [Unknown]
  - Ovarian cyst ruptured [Recovering/Resolving]
  - Bacterial pyelonephritis [Unknown]
  - Asthma [Unknown]
  - Pneumonia [Unknown]
  - Deep vein thrombosis [Recovered/Resolved]
  - Pulmonary embolism [Unknown]
  - Rhinitis allergic [Unknown]
  - Gastroenteritis viral [Recovered/Resolved]
  - Panic attack [Unknown]
  - Vulvovaginal burning sensation [Unknown]
  - Amenorrhoea [Unknown]
  - Gastritis [Unknown]
  - Vulvovaginal candidiasis [Unknown]
  - Urinary tract infection bacterial [Unknown]
  - Urinary tract infection [Unknown]
  - Migraine [Unknown]
  - Anxiety [Not Recovered/Not Resolved]
  - Vulvovaginal pruritus [Unknown]
  - Depressed mood [Not Recovered/Not Resolved]
  - Constipation [Unknown]
  - Abdominal pain [Unknown]
  - Sinusitis [Unknown]
  - Proctalgia [Unknown]
  - Haemorrhoids [Unknown]
  - Parotitis [Unknown]
  - Cervical dysplasia [Unknown]
  - Pain [Unknown]
  - Inappropriate schedule of drug administration [Unknown]
  - Abnormal withdrawal bleeding [Unknown]
  - Off label use [Unknown]
  - Renal vein thrombosis [Unknown]
  - Maternal exposure before pregnancy [Unknown]
